FAERS Safety Report 5629851-2 (Version None)
Quarter: 2008Q1

REPORT INFORMATION
  Report Type: 
  Country: None (occurrence: None)
  Receive Date: 20080218
  Receipt Date: 20080214
  Transmission Date: 20080703
  Serious: Yes (Other)
  Sender: FDA-Public Use
  Company Number: US-ASTRAZENECA-2008UW03055

PATIENT
  Age: 43 Year
  Sex: Female

DRUGS (3)
  1. SEROQUEL [Suspect]
     Route: 048
  2. INVEGA [Suspect]
     Indication: PSYCHOTIC DISORDER
     Dosage: 1 IN 1 DAY
     Route: 048
     Dates: start: 20070701
  3. ZOLOFT [Concomitant]

REACTIONS (1)
  - WHITE BLOOD CELL COUNT DECREASED [None]
